FAERS Safety Report 6410148-8 (Version None)
Quarter: 2009Q4

REPORT INFORMATION
  Report Type: 
  Country: None (occurrence: None)
  Receive Date: 20091020
  Receipt Date: 20091020
  Transmission Date: 20100525
  Serious: Yes (Other)
  Sender: FDA-Public Use
  Company Number: None

PATIENT
  Sex: Female
  Weight: 81.6475 kg

DRUGS (2)
  1. SINGULAIR [Suspect]
     Indication: MULTIPLE ALLERGIES
     Dosage: 10MG DAILY ORAL
     Route: 048
     Dates: start: 20080101, end: 20090601
  2. SINGULAIR [Suspect]
     Indication: NASAL DISORDER
     Dosage: 10MG DAILY ORAL
     Route: 048
     Dates: start: 20080101, end: 20090601

REACTIONS (10)
  - AGORAPHOBIA [None]
  - ANXIETY [None]
  - ASTHENIA [None]
  - DEPRESSION [None]
  - FAMILY STRESS [None]
  - HYPOPHAGIA [None]
  - INSOMNIA [None]
  - SOCIAL AVOIDANT BEHAVIOUR [None]
  - SUICIDAL IDEATION [None]
  - WEIGHT DECREASED [None]
